FAERS Safety Report 8212370-7 (Version None)
Quarter: 2012Q1

REPORT INFORMATION
  Report Type: 
  Country: None (occurrence: None)
  Receive Date: 20120315
  Receipt Date: 20120307
  Transmission Date: 20120608
  Serious: Yes (Hospitalization)
  Sender: FDA-Public Use
  Company Number: IE-MEDIMMUNE-MEDI-0015138

PATIENT
  Sex: Female

DRUGS (3)
  1. SYNAGIS [Suspect]
     Dates: start: 20120113, end: 20120113
  2. KAPSOVIT [Concomitant]
  3. FERROUS SULFATE TAB [Concomitant]

REACTIONS (1)
  - MENINGITIS [None]
